FAERS Safety Report 9059687 (Version 1)
Quarter: 2013Q1

REPORT INFORMATION
  Report Type: Spontaneous
  Country: US (occurrence: None)
  Receive Date: 20130206
  Receipt Date: 20130206
  Transmission Date: 20140127
  Serious: No
  Sender: FDA-Public Use
  Company Number: None

PATIENT
  Age: 34 Year
  Sex: Female
  Weight: 101.8 kg

DRUGS (1)
  1. BACITRACIN-NEOMYCIN [Suspect]

REACTIONS (5)
  - Rash [None]
  - Oedema [None]
  - Pruritus [None]
  - Drug hypersensitivity [None]
  - Swelling [None]
